FAERS Safety Report 6202801-6 (Version None)
Quarter: 2009Q2

REPORT INFORMATION
  Report Type: 
  Country: None (occurrence: None)
  Receive Date: 20090519
  Receipt Date: 20090513
  Transmission Date: 20091009
  Serious: Yes (Death, Hospitalization)
  Sender: FDA-Public Use
  Company Number: 2009US001721

PATIENT
  Sex: Male

DRUGS (3)
  1. PROGRAF [Suspect]
     Indication: HEART TRANSPLANT
     Dosage: 8 MG, UID/QD, ORAL
     Route: 048
  2. PROGRAF [Suspect]
     Indication: HEART TRANSPLANT
     Dosage: /D
  3. MYCOPHENOLATE MOFETIL [Concomitant]

REACTIONS (1)
  - INFECTION [None]
